FAERS Safety Report 19939371 (Version 1)
Quarter: 2021Q4

REPORT INFORMATION
  Report Type: Report from Study
  Country: US (occurrence: US)
  Receive Date: 20211011
  Receipt Date: 20211011
  Transmission Date: 20220303
  Serious: Yes (Hospitalization, Other)
  Sender: FDA-Public Use
  Company Number: US-BAYER-2021A218878

PATIENT
  Age: 79 Year
  Sex: Male

DRUGS (1)
  1. STIVARGA [Suspect]
     Active Substance: REGORAFENIB
     Indication: Anal cancer
     Dosage: 120 MG DAILY
     Route: 048
     Dates: start: 20210910

REACTIONS (5)
  - Renal pain [None]
  - Hypertension [Unknown]
  - Dialysis [Unknown]
  - Asthenia [Unknown]
  - Off label use [None]

NARRATIVE: CASE EVENT DATE: 20210910
